FAERS Safety Report 4276466-7 (Version None)
Quarter: 2004Q1

REPORT INFORMATION
  Report Type: 
  Country: None (occurrence: None)
  Receive Date: 20040120
  Receipt Date: 20040116
  Transmission Date: 20041129
  Serious: Yes (Other)
  Sender: FDA-Public Use
  Company Number: HQ5513626NOV2002

PATIENT
  Age: 48 Year
  Sex: Male

DRUGS (2)
  1. DIMETAPP [Suspect]
     Dosage: ORAL
     Route: 048
  2. TAVIST D [Suspect]
     Dosage: ORAL
     Route: 048

REACTIONS (2)
  - CEREBRAL INFARCTION [None]
  - CEREBROVASCULAR ACCIDENT [None]
